FAERS Safety Report 5217839-5 (Version None)
Quarter: 2007Q1

REPORT INFORMATION
  Report Type: 
  Country: None (occurrence: None)
  Receive Date: 20061130
  Receipt Date: 20060720
  Transmission Date: 20070707
  Serious: Yes (Other)
  Sender: FDA-Public Use
  Company Number: US200607004588

PATIENT
  Age: 46 Year
  Sex: Male
  Weight: 113.4 kg

DRUGS (6)
  1. ZYPREXA [Suspect]
     Dates: start: 19960101
  2. SEROQUEL [Concomitant]
  3. RISPERDAL /SWE/ (RISPERIDONE) [Concomitant]
  4. STELAZINE [Concomitant]
  5. GEODON [Concomitant]
  6. DEPAKOTE [Concomitant]

REACTIONS (2)
  - DIABETES MELLITUS [None]
  - DIABETIC KETOACIDOSIS [None]
